FAERS Safety Report 4378301-5 (Version None)
Quarter: 2004Q2

REPORT INFORMATION
  Report Type: 
  Country: None (occurrence: None)
  Receive Date: 20040614
  Receipt Date: 20040614
  Transmission Date: 20050107
  Serious: No
  Sender: FDA-Public Use
  Company Number: None

PATIENT
  Age: 67 Year
  Sex: Female

DRUGS (1)
  1. ASPARAGINASE [Suspect]

REACTIONS (2)
  - FEBRILE NEUTROPENIA [None]
  - INJECTION SITE CELLULITIS [None]
